FAERS Safety Report 6075173-8 (Version None)
Quarter: 2009Q1

REPORT INFORMATION
  Report Type: 
  Country: None (occurrence: None)
  Receive Date: 20090121
  Receipt Date: 20071213
  Transmission Date: 20090719
  Serious: Yes (Other)
  Sender: FDA-Public Use
  Company Number: US-WYE-H01757407

PATIENT
  Age: 55 Year
  Sex: Female
  Weight: 79.45 kg

DRUGS (4)
  1. PREMPRO [Suspect]
     Indication: MENOPAUSAL SYMPTOMS
     Dosage: 0.625/2.5MG, ORAL
     Route: 048
     Dates: start: 20070101, end: 20071101
  2. OMEPRAZOLE [Concomitant]
  3. LORAZEPAM [Concomitant]
  4. SYNTHROID [Concomitant]

REACTIONS (1)
  - ENDOMETRIAL CANCER [None]
